FAERS Safety Report 4383390-8 (Version None)
Quarter: 2004Q2

REPORT INFORMATION
  Report Type: 
  Country: None (occurrence: None)
  Receive Date: 20040623
  Receipt Date: 20040611
  Transmission Date: 20050107
  Serious: Yes (Other)
  Sender: FDA-Public Use
  Company Number: PHBS2004IT07838

PATIENT
  Age: 40 Year
  Sex: Male

DRUGS (1)
  1. VALSARTAN [Suspect]
     Indication: HYPERTENSION

REACTIONS (4)
  - DRUG ERUPTION [None]
  - LYMPHOCYTIC INFILTRATION [None]
  - RASH ERYTHEMATOUS [None]
  - SKIN LESION [None]
